APPROVED DRUG PRODUCT: ADZENYS XR-ODT
Active Ingredient: AMPHETAMINE
Strength: EQ 12.5MG BASE
Dosage Form/Route: TABLET, ORALLY DISINTEGRATING, EXTENDED RELEASE;ORAL
Application: N204326 | Product #004 | TE Code: AB
Applicant: NEOS THERAPEUTICS
Approved: Jan 27, 2016 | RLD: Yes | RS: No | Type: RX

PATENTS:
Patent 9017731 | Expires: Jun 28, 2032
Patent 9265737 | Expires: Jun 28, 2032
Patent 9839619 | Expires: Jun 28, 2032
Patent 8840924 | Expires: Apr 9, 2026
Patent 8709491 | Expires: Jun 28, 2032